FAERS Safety Report 8830459 (Version 1)
Quarter: 2012Q4

REPORT INFORMATION
  Report Type: 
  Country: IT (occurrence: IT)
  Receive Date: 20121009
  Receipt Date: 20121009
  Transmission Date: 20130627
  Serious: Yes (Hospitalization, Other)
  Sender: FDA-Public Use
  Company Number: IT-BRISTOL-MYERS SQUIBB COMPANY-17005711

PATIENT
  Age: 81 Year
  Sex: Female

DRUGS (2)
  1. COUMADIN TABS 5 MG [Suspect]
     Indication: ATRIAL FIBRILLATION
     Route: 048
     Dates: start: 20010119, end: 20110119
  2. LANOXIN [Concomitant]
     Indication: ATRIAL FIBRILLATION
     Dosage: tabs
     Route: 048
     Dates: start: 20010110

REACTIONS (3)
  - Subdural haematoma [Recovering/Resolving]
  - Head injury [Recovering/Resolving]
  - Drug abuse [Recovering/Resolving]
